FAERS Safety Report 9535171 (Version 1)
Quarter: 2013Q3

REPORT INFORMATION
  Report Type: Spontaneous
  Country: US (occurrence: US)
  Receive Date: 20130918
  Receipt Date: 20130918
  Transmission Date: 20140515
  Serious: No
  Sender: FDA-Public Use
  Company Number: US-PURDUE-USA-2012-0091768

PATIENT
  Sex: Female

DRUGS (2)
  1. INTERMEZZO [Suspect]
     Indication: INSOMNIA
     Route: 060
  2. SLEEP AID NOS [Suspect]
     Indication: INSOMNIA

REACTIONS (1)
  - Fatigue [Unknown]
